FAERS Safety Report 10275538 (Version 1)
Quarter: 2014Q2

REPORT INFORMATION
  Report Type: Spontaneous
  Country: US (occurrence: None)
  Receive Date: 20140630
  Receipt Date: 20140630
  Transmission Date: 20141212
  Serious: Yes (Other)
  Sender: FDA-Public Use
  Company Number: None

PATIENT
  Age: 68 Year
  Sex: Male
  Weight: 90.72 kg

DRUGS (1)
  1. TAMSULOSIN [Suspect]
     Indication: BENIGN PROSTATIC HYPERPLASIA
     Dosage: 1-2 CAPSULES, 1-2 PER DAY, TAKEN BY MOUTH
     Route: 048
     Dates: start: 20100601, end: 20140627

REACTIONS (3)
  - Vision blurred [None]
  - Pupil fixed [None]
  - Intraocular pressure increased [None]
